FAERS Safety Report 23795071 (Version 1)
Quarter: 2024Q2

REPORT INFORMATION
  Report Type: Spontaneous
  Country: US (occurrence: None)
  Receive Date: 20240426
  Receipt Date: 20240426
  Transmission Date: 20240716
  Serious: Yes (Hospitalization)
  Sender: FDA-Public Use
  Company Number: None

PATIENT
  Age: 55 Year
  Sex: Female
  Weight: 84.4 kg

DRUGS (2)
  1. BOTOX [Suspect]
     Active Substance: ONABOTULINUMTOXINA
     Indication: Bladder spasm
     Dosage: OTHER FREQUENCY : EVERY 6 MONTHS;?OTHER ROUTE : SUBMUCOSAL;?
     Route: 050
     Dates: start: 20231103
  2. BOTOX [Suspect]
     Active Substance: ONABOTULINUMTOXINA
     Indication: Urinary incontinence

REACTIONS (3)
  - Paralysis [None]
  - Muscle rigidity [None]
  - Dyskinesia [None]

NARRATIVE: CASE EVENT DATE: 20240419
